FAERS Safety Report 6964530-0 (Version None)
Quarter: 2010Q3

REPORT INFORMATION
  Report Type: 
  Country: None (occurrence: None)
  Receive Date: 20100903
  Receipt Date: 20100826
  Transmission Date: 20110219
  Serious: Yes (Other)
  Sender: FDA-Public Use
  Company Number: US-ASTRAZENECA-2009SE33744

PATIENT
  Age: 659 Month
  Sex: Female

DRUGS (8)
  1. SEROQUEL [Suspect]
     Dosage: 100 MG TAKE ONE OR THREE TABLET
     Route: 048
     Dates: start: 20020424
  2. THIOTHIXENE [Concomitant]
     Dosage: 5 MG TAKE ONE CAPSULE TWI
     Dates: start: 20020412
  3. NEURONTIN [Concomitant]
     Dosage: 300 MG TAKE ONE CAPSULE THREE T
     Dates: start: 20020415
  4. DIPHENHYDRAMINE HCL [Concomitant]
     Dosage: 50 MG TAKE ONE CAPSULE AT
     Dates: start: 20020420
  5. LIPITOR [Concomitant]
     Dosage: 20 MG TAKE ONE TABLET EVER
     Dates: start: 20020423
  6. FIBERCON [Concomitant]
     Dosage: 625 MG TAKE TWO TABLETS TWI
     Dates: start: 20020424
  7. AMBIEN [Concomitant]
     Dosage: 5 MG TAKE THREE TABLETS AT
     Dates: start: 20020425
  8. BENZTROPINE MES [Concomitant]
     Dosage: 2 MG TAKE ONE TABLET THREE TI
     Dates: start: 20020506

REACTIONS (3)
  - AUTONOMIC NEUROPATHY [None]
  - DIABETES MELLITUS [None]
  - DIABETIC NEUROPATHY [None]
